FAERS Safety Report 8928607 (Version 1)
Quarter: 2012Q4

REPORT INFORMATION
  Report Type: Spontaneous
  Country: US (occurrence: None)
  Receive Date: 20121126
  Receipt Date: 20121126
  Transmission Date: 20130627
  Serious: No
  Sender: FDA-Public Use
  Company Number: None

PATIENT
  Age: 52 Year
  Sex: Female
  Weight: 69.4 kg

DRUGS (4)
  1. NITROFURANTOIN [Suspect]
     Indication: UTI
     Dosage: 1 pill 2x daily po
     Route: 048
     Dates: start: 20121027, end: 20121030
  2. NITROFURANTOIN [Suspect]
     Indication: UTI
     Dates: start: 20121120, end: 20121120
  3. NITROFURANTOIN [Suspect]
  4. IBUPROFEN [Concomitant]

REACTIONS (3)
  - Influenza like illness [None]
  - Painful respiration [None]
  - Abdominal pain upper [None]
